FAERS Safety Report 19613038 (Version 1)
Quarter: 2021Q3

REPORT INFORMATION
  Report Type: Report from Study
  Country: US (occurrence: US)
  Receive Date: 20210727
  Receipt Date: 20210727
  Transmission Date: 20211014
  Serious: Yes (Other)
  Sender: FDA-Public Use
  Company Number: US-SA-2021SA147815

PATIENT
  Age: 51 Year
  Sex: Female

DRUGS (3)
  1. TERIFLUNOMIDE. [Suspect]
     Active Substance: TERIFLUNOMIDE
     Dosage: 14MG, QD
     Route: 048
     Dates: start: 20210622, end: 2021
  2. TERIFLUNOMIDE. [Suspect]
     Active Substance: TERIFLUNOMIDE
     Indication: MULTIPLE SCLEROSIS
     Dosage: 14MG, QD
     Route: 048
     Dates: start: 20190322, end: 20200601
  3. AIMOVIG [Concomitant]
     Active Substance: ERENUMAB-AOOE

REACTIONS (11)
  - Multiple sclerosis [Not Recovered/Not Resolved]
  - Occipital neuralgia [Unknown]
  - Immature granulocyte count increased [Not Recovered/Not Resolved]
  - Hemiparesis [Unknown]
  - Blood test abnormal [Unknown]
  - Diplopia [Unknown]
  - Migraine [Unknown]
  - Feeling abnormal [Not Recovered/Not Resolved]
  - JC polyomavirus test positive [Unknown]
  - Unevaluable event [Not Recovered/Not Resolved]
  - Mental impairment [Not Recovered/Not Resolved]

NARRATIVE: CASE EVENT DATE: 201912
